FAERS Safety Report 8344409-2 (Version None)
Quarter: 2012Q2

REPORT INFORMATION
  Report Type: 
  Country: None (occurrence: None)
  Receive Date: 20120508
  Receipt Date: 20120423
  Transmission Date: 20120825
  Serious: Yes (Other)
  Sender: FDA-Public Use
  Company Number: PT-ROCHE-1062601

PATIENT

DRUGS (1)
  1. AVASTIN [Suspect]
     Indication: AGE-RELATED MACULAR DEGENERATION
     Route: 050

REACTIONS (5)
  - CATARACT [None]
  - RETINAL PIGMENT EPITHELIAL TEAR [None]
  - LABORATORY TEST ABNORMAL [None]
  - EYE HAEMORRHAGE [None]
  - APOLIPOPROTEIN B INCREASED [None]
